FAERS Safety Report 11237639 (Version 1)
Quarter: 2015Q3

REPORT INFORMATION
  Report Type: Spontaneous
  Country: MY (occurrence: MY)
  Receive Date: 20150703
  Receipt Date: 20150703
  Transmission Date: 20151125
  Serious: Yes (Other)
  Sender: FDA-Public Use
  Company Number: MY-ACTAVIS-2015-13475

PATIENT
  Age: 10 Year
  Sex: Female

DRUGS (4)
  1. DIMENATE [Suspect]
     Active Substance: DIMENHYDRINATE
     Indication: VOMITING
     Dosage: 150 MG, DAILY
     Route: 048
  2. DHAMOTIL [Suspect]
     Active Substance: ATROPINE SULFATE\DIPHENOXYLATE HYDROCHLORIDE
     Indication: DIARRHOEA
     Dosage: 1 TABLET, DAILY, USED THREE TIMES
     Route: 048
  3. CHARCOAL [Concomitant]
     Active Substance: ACTIVATED CHARCOAL
     Indication: PRODUCT USED FOR UNKNOWN INDICATION
     Dosage: UNK UNK, UNKNOWN
     Route: 065
  4. DROTAVERIN                         /00359201/ [Concomitant]
     Indication: PRODUCT USED FOR UNKNOWN INDICATION
     Dosage: UNK UNK, UNKNOWN
     Route: 065

REACTIONS (6)
  - Dizziness [Unknown]
  - Vomiting [Unknown]
  - Nausea [Unknown]
  - Abdominal distension [Unknown]
  - Scleral discolouration [Unknown]
  - Abdominal pain [Unknown]

NARRATIVE: CASE EVENT DATE: 20140531
